FAERS Safety Report 7386817-2 (Version None)
Quarter: 2011Q1

REPORT INFORMATION
  Report Type: 
  Country: None (occurrence: None)
  Receive Date: 20110331
  Receipt Date: 20110328
  Transmission Date: 20110831
  Serious: Yes (Death, Other)
  Sender: FDA-Public Use
  Company Number: PHHY2011GB24973

PATIENT
  Sex: Female

DRUGS (12)
  1. BISOPROLOL [Concomitant]
  2. DIGOXIN [Concomitant]
     Route: 048
  3. ROPINIROLE [Suspect]
     Route: 048
  4. RISPERIDONE [Suspect]
     Route: 048
  5. FORTISIP [Concomitant]
     Route: 048
  6. FUROSEMIDE [Concomitant]
     Route: 048
  7. IRON [Concomitant]
     Route: 048
  8. AMOXICILLIN [Concomitant]
     Indication: PARKINSON'S DISEASE
  9. ASPIRIN [Concomitant]
  10. CARBIMAZOLE [Concomitant]
  11. SINEMET [Concomitant]
     Route: 048
  12. SPARTEINE [Concomitant]

REACTIONS (2)
  - DEATH [None]
  - MEDICATION ERROR [None]
